FAERS Safety Report 8773758 (Version 1)
Quarter: 2012Q4

REPORT INFORMATION
  Report Type: 
  Country: US (occurrence: US)
  Receive Date: 20120907
  Receipt Date: 20120907
  Transmission Date: 20130627
  Serious: No
  Sender: FDA-Public Use
  Company Number: US-PFIZER INC-2012220662

PATIENT
  Sex: Male

DRUGS (1)
  1. CELEBREX [Suspect]
     Indication: SURGERY
     Dosage: 200 mg, 2x/day
     Route: 048

REACTIONS (2)
  - Anxiety [Unknown]
  - Sleep disorder [Unknown]
